FAERS Safety Report 9422420 (Version 4)
Quarter: 2014Q2

REPORT INFORMATION
  Report Type: Spontaneous
  Country: US (occurrence: None)
  Receive Date: 20130724
  Receipt Date: 20140515
  Transmission Date: 20141212
  Serious: Yes (Hospitalization, Other)
  Sender: FDA-Public Use
  Company Number: ADR-2013-00867

PATIENT
  Age: 31 Year
  Sex: Male

DRUGS (1)
  1. LIORESAL [Suspect]
     Indication: MUSCLE SPASTICITY

REACTIONS (13)
  - Muscle spasticity [None]
  - Drug withdrawal syndrome [None]
  - Cerebrospinal fluid leakage [None]
  - Device breakage [None]
  - Overdose [None]
  - Underdose [None]
  - Lethargy [None]
  - Gait disturbance [None]
  - Somnolence [None]
  - Muscular weakness [None]
  - Discomfort [None]
  - Dysstasia [None]
  - Gait disturbance [None]
